FAERS Safety Report 24731442 (Version 1)
Quarter: 2024Q4

REPORT INFORMATION
  Report Type: Spontaneous
  Country: CA (occurrence: CA)
  Receive Date: 20241213
  Receipt Date: 20241213
  Transmission Date: 20250114
  Serious: Yes (Death, Life-Threatening, Hospitalization, Disabling, Other)
  Sender: TEVA
  Company Number: CA-TEVA-VS-3275071

PATIENT
  Age: 80 Year
  Sex: Male

DRUGS (22)
  1. ALBUTEROL [Suspect]
     Active Substance: ALBUTEROL
     Indication: Prophylaxis
     Route: 065
  2. ALBUTEROL [Suspect]
     Active Substance: ALBUTEROL
     Indication: Prophylaxis
     Dosage: DOSE FORM: NOT SPECIFIED
     Route: 065
  3. ALBUTEROL [Suspect]
     Active Substance: ALBUTEROL
     Indication: Prophylaxis
     Route: 065
  4. ALBUTEROL [Suspect]
     Active Substance: ALBUTEROL
     Indication: Prophylaxis
     Dosage: SALBUTAMOL SULFATE
     Route: 065
  5. CORTISONE [Suspect]
     Active Substance: CORTISONE
     Indication: Product used for unknown indication
     Dosage: DOSE FORM: NOT SPECIFIED
     Route: 065
  6. POLYETHYLENE GLYCOL 3350 [Suspect]
     Active Substance: POLYETHYLENE GLYCOL 3350
     Indication: Off label use
     Dosage: DOSE FORM: NOT SPECIFIED
     Route: 048
  7. POLYETHYLENE GLYCOL 3350 [Suspect]
     Active Substance: POLYETHYLENE GLYCOL 3350
     Indication: Off label use
     Route: 042
  8. BUDESONIDE [Suspect]
     Active Substance: BUDESONIDE
     Indication: Product used for unknown indication
     Dosage: DOSE FORM: TABLET (DELAYED AND EXTENDED RELEASE)
     Route: 065
  9. PHYTONADIONE [Suspect]
     Active Substance: PHYTONADIONE
     Indication: Vitamin supplementation
     Route: 065
  10. PHYTONADIONE [Suspect]
     Active Substance: PHYTONADIONE
     Indication: Vitamin supplementation
     Route: 065
  11. PHYTONADIONE [Suspect]
     Active Substance: PHYTONADIONE
     Indication: Vitamin supplementation
     Dosage: DOSE FORM: NOT SPECIFIED
     Route: 065
  12. RAMIPRIL [Suspect]
     Active Substance: RAMIPRIL
     Indication: Prophylaxis
     Dosage: DOSE FORM: NOT SPECIFIED
     Route: 048
  13. RAMIPRIL [Suspect]
     Active Substance: RAMIPRIL
     Indication: Prophylaxis
     Route: 065
  14. MESALAMINE [Suspect]
     Active Substance: MESALAMINE
     Indication: Product used for unknown indication
     Dosage: DOSE FORM: NOT SPECIFIED
     Route: 065
  15. EFINACONAZOLE [Suspect]
     Active Substance: EFINACONAZOLE
     Indication: Product used for unknown indication
     Route: 061
  16. IPRATROPIUM [Suspect]
     Active Substance: IPRATROPIUM
     Indication: Sleep disorder therapy
     Route: 065
  17. IPRATROPIUM [Suspect]
     Active Substance: IPRATROPIUM
     Indication: Sleep disorder therapy
     Route: 065
  18. IPRATROPIUM [Suspect]
     Active Substance: IPRATROPIUM
     Indication: Sleep disorder therapy
     Dosage: IPRATROPIUM BROMIDE
     Route: 065
  19. IPRATROPIUM [Suspect]
     Active Substance: IPRATROPIUM
     Indication: Sleep disorder therapy
     Dosage: IPRATROPIUM BROMIDE
     Route: 050
  20. IPRATROPIUM [Suspect]
     Active Substance: IPRATROPIUM
     Indication: Sleep disorder therapy
     Dosage: IPRATROPIUM BROMIDE
     Route: 065
  21. NITROGLYCERIN [Suspect]
     Active Substance: NITROGLYCERIN
     Indication: Product used for unknown indication
     Dosage: DOSE FORM: NOT SPECIFIED
     Route: 065
  22. METRONIDAZOLE [Suspect]
     Active Substance: METRONIDAZOLE
     Indication: Product used for unknown indication
     Dosage: DOSE FORM: NOT SPECIFIED
     Route: 065

REACTIONS (88)
  - Abdominal pain upper [Fatal]
  - Aspartate aminotransferase increased [Fatal]
  - Gastrooesophageal reflux disease [Fatal]
  - Sepsis [Fatal]
  - Antacid therapy [Fatal]
  - Breath sounds abnormal [Fatal]
  - Bronchiectasis [Fatal]
  - Total lung capacity decreased [Fatal]
  - Cough [Fatal]
  - Off label use [Fatal]
  - Sleep disorder therapy [Fatal]
  - General physical health deterioration [Fatal]
  - Appendicitis [Fatal]
  - Asthenia [Fatal]
  - Nausea [Fatal]
  - Pain [Fatal]
  - End stage renal disease [Fatal]
  - Swelling [Fatal]
  - Incorrect route of product administration [Fatal]
  - Hyperphosphataemia [Fatal]
  - Pulmonary fibrosis [Fatal]
  - Coronary artery disease [Fatal]
  - Drug intolerance [Fatal]
  - Sleep disorder [Fatal]
  - Lung opacity [Fatal]
  - Thrombosis [Fatal]
  - Rales [Fatal]
  - Pulmonary mass [Fatal]
  - Anticoagulant therapy [Fatal]
  - Hypoxia [Fatal]
  - Haemoptysis [Fatal]
  - Chronic obstructive pulmonary disease [Fatal]
  - Drug ineffective [Fatal]
  - Pleuritic pain [Fatal]
  - Joint injury [Fatal]
  - Asthma [Fatal]
  - Death [Fatal]
  - Pulmonary embolism [Fatal]
  - Vomiting [Fatal]
  - Ventricular fibrillation [Fatal]
  - Activated partial thromboplastin time prolonged [Fatal]
  - Wheezing [Fatal]
  - Anaemia [Fatal]
  - Full blood count abnormal [Fatal]
  - Headache [Fatal]
  - Product use in unapproved indication [Fatal]
  - Malignant melanoma in situ [Fatal]
  - Aspiration [Fatal]
  - Bronchopulmonary aspergillosis allergic [Fatal]
  - Condition aggravated [Fatal]
  - Sputum discoloured [Fatal]
  - Pneumonia [Fatal]
  - Neuralgia [Fatal]
  - Dry mouth [Fatal]
  - Intentional product misuse [Fatal]
  - Diabetes mellitus [Fatal]
  - Hyperlipidaemia [Fatal]
  - Benign prostatic hyperplasia [Fatal]
  - Gout [Fatal]
  - Oedema peripheral [Fatal]
  - Fatigue [Fatal]
  - Obstructive airways disorder [Fatal]
  - Myasthenia gravis [Fatal]
  - Pyrexia [Fatal]
  - Cardiogenic shock [Fatal]
  - Congenital hiatus hernia [Fatal]
  - Tremor [Fatal]
  - Iron deficiency [Fatal]
  - Multiple organ dysfunction syndrome [Fatal]
  - Micturition urgency [Fatal]
  - Pleural effusion [Fatal]
  - Abdominal distension [Fatal]
  - Upper respiratory tract infection [Fatal]
  - Appendicolith [Fatal]
  - Lower respiratory tract infection [Fatal]
  - Product dose omission issue [Fatal]
  - Drug hypersensitivity [Fatal]
  - Somnolence [Fatal]
  - Aortic stenosis [Fatal]
  - Constipation [Fatal]
  - Bacterial infection [Fatal]
  - Hyponatraemia [Fatal]
  - Hypophosphataemia [Fatal]
  - Ascites [Fatal]
  - Musculoskeletal stiffness [Fatal]
  - Dyspnoea [Fatal]
  - Stress [Fatal]
  - Abdominal pain [Fatal]
